FAERS Safety Report 10757957 (Version 3)
Quarter: 2015Q1

REPORT INFORMATION
  Report Type: Spontaneous
  Country: TR (occurrence: TR)
  Receive Date: 20150203
  Receipt Date: 20150204
  Transmission Date: 20150721
  Serious: Yes (Hospitalization)
  Sender: FDA-Public Use
  Company Number: TR-NOVOPROD-436784

PATIENT
  Sex: Male
  Weight: 2 kg

DRUGS (5)
  1. LEVEMIR [Suspect]
     Active Substance: INSULIN DETEMIR
     Indication: GESTATIONAL DIABETES
     Dosage: 8 U, QD
     Route: 064
     Dates: start: 20141016, end: 20141119
  2. FERRO SANOL [Concomitant]
     Active Substance: FERROUS SULFATE\GLYCINE
     Indication: IRON DEFICIENCY
     Dosage: UNK
     Route: 064
     Dates: start: 201406, end: 20141119
  3. OSTEOCARE [Concomitant]
     Active Substance: CALCIUM\CHOLECALCIFEROL\MAGNESIUM\ZINC
     Indication: VITAMIN SUPPLEMENTATION
     Dosage: UNK
     Route: 063
     Dates: start: 201406, end: 20141119
  4. OMEGA 3                            /01333901/ [Concomitant]
     Indication: VITAMIN SUPPLEMENTATION
     Dosage: UNK
     Route: 064
     Dates: start: 201409, end: 20141119
  5. PROGESTAN [Concomitant]
     Active Substance: PROGESTERONE
     Indication: HORMONE THERAPY
     Dosage: UNK
     Route: 064
     Dates: start: 20140604, end: 20141119

REACTIONS (2)
  - Foetal exposure during pregnancy [Recovered/Resolved]
  - Premature baby [Unknown]

NARRATIVE: CASE EVENT DATE: 20141016
